FAERS Safety Report 11328274 (Version 1)
Quarter: 2015Q3

REPORT INFORMATION
  Report Type: Spontaneous
  Country: BE (occurrence: BE)
  Receive Date: 20150731
  Receipt Date: 20150731
  Transmission Date: 20151125
  Serious: Yes (Other)
  Sender: FDA-Public Use
  Company Number: BE-ABBVIE-15K-013-1419616-00

PATIENT
  Sex: Female
  Weight: 60 kg

DRUGS (5)
  1. HUMIRA [Suspect]
     Active Substance: ADALIMUMAB
     Indication: PSORIATIC ARTHROPATHY
     Dosage: SEVERAL YEARS
     Route: 065
     Dates: start: 2005, end: 2011
  2. HUMIRA [Suspect]
     Active Substance: ADALIMUMAB
     Indication: SPONDYLITIS
     Dosage: SEVERAL YEARS
     Route: 065
     Dates: start: 2011, end: 2013
  3. HUMIRA [Suspect]
     Active Substance: ADALIMUMAB
     Dosage: SEVERAL YEARS
     Route: 065
     Dates: start: 2013, end: 201501
  4. LEDERTREXATE [Concomitant]
     Active Substance: METHOTREXATE
     Indication: SPONDYLITIS
  5. LEDERTREXATE [Concomitant]
     Active Substance: METHOTREXATE
     Indication: PSORIATIC ARTHROPATHY
     Dates: start: 2012

REACTIONS (5)
  - White matter lesion [Unknown]
  - Neck pain [Unknown]
  - Echocardiogram abnormal [Unknown]
  - Eyelid ptosis [Not Recovered/Not Resolved]
  - Aphasia [Unknown]
